FAERS Safety Report 24834817 (Version 1)
Quarter: 2025Q1

REPORT INFORMATION
  Report Type: Report from Study
  Country: DK (occurrence: DK)
  Receive Date: 20250113
  Receipt Date: 20250113
  Transmission Date: 20250408
  Serious: Yes (Hospitalization)
  Sender: JOHNSON AND JOHNSON
  Company Number: DK-JNJFOC-20241289223

PATIENT
  Age: 12 Year
  Sex: Female
  Weight: 52.5 kg

DRUGS (4)
  1. INFLIXIMAB [Suspect]
     Active Substance: INFLIXIMAB
     Indication: Crohn^s disease
     Route: 041
     Dates: start: 20120105, end: 20140327
  2. INFLIXIMAB [Suspect]
     Active Substance: INFLIXIMAB
     Indication: Colitis ulcerative
  3. HUMIRA [Concomitant]
     Active Substance: ADALIMUMAB
     Dates: start: 20140513, end: 20190218
  4. ADALIMUMAB [Concomitant]
     Active Substance: ADALIMUMAB
     Dates: start: 20190202

REACTIONS (1)
  - Dysphagia [Recovered/Resolved]

NARRATIVE: CASE EVENT DATE: 20240819
